FAERS Safety Report 10269427 (Version 4)
Quarter: 2015Q1

REPORT INFORMATION
  Report Type: Report from Study
  Country: US (occurrence: US)
  Receive Date: 20140701
  Receipt Date: 20150212
  Transmission Date: 20150720
  Serious: Yes (Death)
  Sender: FDA-Public Use
  Company Number: US-BIOGENIDEC-2014BI060372

PATIENT
  Age: 63 Year
  Sex: Female

DRUGS (1)
  1. TYSABRI [Suspect]
     Active Substance: NATALIZUMAB
     Indication: MULTIPLE SCLEROSIS
     Route: 042
     Dates: start: 20120806, end: 20140407

REACTIONS (5)
  - Diet refusal [Unknown]
  - Depression [Fatal]
  - Refusal of treatment by patient [Unknown]
  - Failure to thrive [Fatal]
  - Death [Fatal]

NARRATIVE: CASE EVENT DATE: 20140522
